APPROVED DRUG PRODUCT: RUFINAMIDE
Active Ingredient: RUFINAMIDE
Strength: 40MG/ML
Dosage Form/Route: SUSPENSION;ORAL
Application: A216841 | Product #001 | TE Code: AB
Applicant: HETERO LABS LTD UNIT III
Approved: Dec 5, 2023 | RLD: No | RS: No | Type: RX